FAERS Safety Report 14015333 (Version 1)
Quarter: 2017Q3

REPORT INFORMATION
  Report Type: Spontaneous
  Country: BR (occurrence: BR)
  Receive Date: 20170927
  Receipt Date: 20170927
  Transmission Date: 20171128
  Serious: Yes (Other)
  Sender: FDA-Public Use
  Company Number: PHHY2017BR140542

PATIENT
  Age: 4 Year
  Sex: Male

DRUGS (1)
  1. AMOXICILLIN + CLAVULANATE POTASSIUM [Suspect]
     Active Substance: AMOXICILLIN\CLAVULANATE POTASSIUM
     Indication: ERYTHEMA
     Dosage: 5 ML, Q8H
     Route: 048
     Dates: start: 20170908

REACTIONS (4)
  - Product storage error [Unknown]
  - Seizure [Unknown]
  - Drug administration error [Unknown]
  - Drug ineffective [Unknown]
